FAERS Safety Report 8446976-7 (Version None)
Quarter: 2012Q2

REPORT INFORMATION
  Report Type: 
  Country: None (occurrence: None)
  Receive Date: 20120619
  Receipt Date: 20120426
  Transmission Date: 20120825
  Serious: Yes (Hospitalization)
  Sender: FDA-Public Use
  Company Number: CL-SANOFI-AVENTIS-2011SA018511

PATIENT
  Age: 10 Year
  Sex: Female
  Weight: 30 kg

DRUGS (5)
  1. INSULIN [Concomitant]
     Route: 065
  2. LANTUS [Suspect]
     Route: 058
     Dates: start: 20100101
  3. APIDRA [Suspect]
     Dosage: DOSE: 0.5-0.7 UNITS NOT SPECIFIED
     Route: 058
  4. APIDRA [Suspect]
     Dosage: DOSE: 0.76 U/KG
     Route: 058
     Dates: start: 20100101
  5. LANTUS [Suspect]
     Route: 058

REACTIONS (3)
  - PSYCHOMOTOR HYPERACTIVITY [None]
  - CONDUCT DISORDER [None]
  - HYPOGLYCAEMIC SEIZURE [None]
